FAERS Safety Report 6928711-4 (Version None)
Quarter: 2010Q3

REPORT INFORMATION
  Report Type: 
  Country: None (occurrence: None)
  Receive Date: 20100817
  Receipt Date: 20100810
  Transmission Date: 20110219
  Serious: Yes (Other)
  Sender: FDA-Public Use
  Company Number: B0639337B

PATIENT
  Age: 56 Year
  Sex: Female

DRUGS (4)
  1. TYKERB [Suspect]
     Indication: BREAST CANCER
     Dosage: 1250MG PER DAY
     Route: 048
     Dates: start: 20100225, end: 20100701
  2. XELODA [Suspect]
     Route: 048
     Dates: start: 20100225
  3. TRASTUZUMAB [Concomitant]
     Indication: BREAST CANCER
     Dosage: 300MG PER DAY
     Route: 042
  4. PYDOXAL [Concomitant]
     Route: 048
     Dates: start: 20090919

REACTIONS (2)
  - DIARRHOEA [None]
  - MALAISE [None]
